FAERS Safety Report 7930136-X (Version None)
Quarter: 2011Q4

REPORT INFORMATION
  Report Type: 
  Country: None (occurrence: None)
  Receive Date: 20111121
  Receipt Date: 20111115
  Transmission Date: 20120403
  Serious: Yes (Other)
  Sender: FDA-Public Use
  Company Number: DE-PFIZER INC-2011280780

PATIENT
  Sex: Male

DRUGS (3)
  1. XALATAN [Suspect]
     Indication: INTRAOCULAR PRESSURE INCREASED
  2. MIRTAZAPINE [Concomitant]
     Dosage: 30 MG, UNK
  3. GRAPEFRUIT JUICE [Concomitant]

REACTIONS (2)
  - INTRAOCULAR PRESSURE INCREASED [None]
  - DRUG EFFECT DECREASED [None]
